FAERS Safety Report 14078287 (Version 1)
Quarter: 2017Q4

REPORT INFORMATION
  Report Type: Report from Study
  Country: None (occurrence: ES)
  Receive Date: 20171012
  Receipt Date: 20171012
  Transmission Date: 20180321
  Serious: Yes (Other)
  Sender: FDA-Public Use
  Company Number: ES-ABBVIE-17K-144-2128141-00

PATIENT
  Age: 57 Year
  Sex: Female

DRUGS (3)
  1. LORAZEPAM. [Concomitant]
     Active Substance: LORAZEPAM
     Indication: PRODUCT USED FOR UNKNOWN INDICATION
  2. DUODOPA [Suspect]
     Active Substance: CARBIDOPA\LEVODOPA
     Indication: PARKINSON^S DISEASE
     Route: 050
     Dates: start: 20151218
  3. METAMIZOLE [Concomitant]
     Active Substance: METAMIZOLE
     Indication: PRODUCT USED FOR UNKNOWN INDICATION
     Dosage: PUNCTUAL

REACTIONS (9)
  - Stoma site haemorrhage [Not Recovered/Not Resolved]
  - Stoma site erythema [Not Recovered/Not Resolved]
  - Stoma site erythema [Recovered/Resolved]
  - Gastric infection [Not Recovered/Not Resolved]
  - Stoma site discharge [Recovered/Resolved]
  - Stoma site discharge [Not Recovered/Not Resolved]
  - Stoma site pain [Recovered/Resolved]
  - Stoma site haemorrhage [Recovered/Resolved]
  - Stoma site pain [Not Recovered/Not Resolved]

NARRATIVE: CASE EVENT DATE: 20171008
